FAERS Safety Report 9307962 (Version 1)
Quarter: 2013Q2

REPORT INFORMATION
  Report Type: Spontaneous
  Country: DK (occurrence: DK)
  Receive Date: 20130524
  Receipt Date: 20130524
  Transmission Date: 20140414
  Serious: Yes (Other)
  Sender: FDA-Public Use
  Company Number: DK-MERCK-1305DNK010667

PATIENT
  Age: 57 Year
  Sex: Male

DRUGS (3)
  1. MIRTAZON [Suspect]
     Indication: DEPRESSION
     Dosage: STYRKE: 15 MG
     Route: 048
     Dates: start: 20090701, end: 20120603
  2. ZOCOR [Concomitant]
     Indication: ADVERSE DRUG REACTION
     Dates: start: 20070101
  3. ZOCOR [Concomitant]
     Indication: BLOOD CHOLESTEROL INCREASED

REACTIONS (2)
  - Thinking abnormal [Recovered/Resolved]
  - Suicidal ideation [Recovered/Resolved]
